FAERS Safety Report 21297609 (Version 1)
Quarter: 2022Q3

REPORT INFORMATION
  Report Type: Spontaneous
  Country: US (occurrence: None)
  Receive Date: 20220902
  Receipt Date: 20220902
  Transmission Date: 20221027
  Serious: Yes (Hospitalization)
  Sender: FDA-Public Use
  Company Number: None

PATIENT
  Age: 64 Year
  Sex: Female
  Weight: 68 kg

DRUGS (1)
  1. EMPAGLIFLOZIN [Suspect]
     Active Substance: EMPAGLIFLOZIN
     Indication: Diabetes mellitus
     Dosage: 10 MG EVERY DAY PO?
     Route: 048
     Dates: start: 20220605, end: 20220610

REACTIONS (2)
  - Renal impairment [None]
  - Blood urea increased [None]

NARRATIVE: CASE EVENT DATE: 20220605
